FAERS Safety Report 5335389-2 (Version None)
Quarter: 2007Q1

REPORT INFORMATION
  Report Type: 
  Country: None (occurrence: None)
  Receive Date: 20070327
  Receipt Date: 20060810
  Transmission Date: 20070707
  Serious: Yes (Hospitalization)
  Sender: FDA-Public Use
  Company Number: HQWYE419214AUG06

PATIENT
  Age: 74 Year
  Sex: Female

DRUGS (8)
  1. PROTONIX [Suspect]
     Indication: GASTRINOMA
     Dosage: SEE IMAGE
     Dates: start: 20060101, end: 20060101
  2. PROTONIX [Suspect]
     Indication: GASTRINOMA
     Dosage: SEE IMAGE
     Dates: end: 20060101
  3. PROTONIX [Suspect]
     Indication: GASTRINOMA
     Dosage: SEE IMAGE
     Dates: start: 20060101
  4. UNSPECIFIED ANTIHYPERTENSIVE AGENT (UNSPECIFIED ANTIHYPERTENSIVE AGENT [Concomitant]
  5. LIPITOR [Concomitant]
  6. UNSPECIFIED ANTIDIABETIC AGENT (UNSPECIFIED ANTIDIABETIC AGENT) [Concomitant]
  7. .. [Concomitant]
  8. .. [Concomitant]

REACTIONS (1)
  - DRUG EFFECT DECREASED [None]
